FAERS Safety Report 8236940-5 (Version None)
Quarter: 2012Q1

REPORT INFORMATION
  Report Type: 
  Country: None (occurrence: None)
  Receive Date: 20120327
  Receipt Date: 20120316
  Transmission Date: 20120608
  Serious: Yes (Other)
  Sender: FDA-Public Use
  Company Number: PHFR2011GB006831

PATIENT
  Sex: Male

DRUGS (6)
  1. DEPAKOTE [Concomitant]
     Indication: SCHIZOPHRENIA, PARANOID TYPE
     Dosage: 500 MG, BID
     Route: 048
  2. CLOZARIL [Suspect]
     Dosage: 650 MG, UNK
     Route: 048
     Dates: start: 20110712, end: 20111203
  3. HALOPERIDOL [Concomitant]
     Indication: SCHIZOPHRENIA, PARANOID TYPE
     Dosage: 15 MG, DIVIDED DOSES
     Route: 048
  4. CLOZARIL [Suspect]
     Route: 048
     Dates: start: 20071203
  5. CLONAZEPAM [Concomitant]
     Indication: SCHIZOPHRENIA, PARANOID TYPE
     Dosage: 0.5 MG, BID
     Route: 048
  6. HYOSCINE HYDROBROMIDE [Concomitant]
     Indication: SCHIZOPHRENIA, PARANOID TYPE
     Dosage: 300 UG, TID
     Route: 048

REACTIONS (3)
  - DYSPHAGIA [None]
  - WHITE BLOOD CELL COUNT INCREASED [None]
  - THINKING ABNORMAL [None]
